FAERS Safety Report 5380386-4 (Version None)
Quarter: 2007Q3

REPORT INFORMATION
  Report Type: 
  Country: None (occurrence: None)
  Receive Date: 20070706
  Receipt Date: 20070523
  Transmission Date: 20080115
  Serious: No
  Sender: FDA-Public Use
  Company Number: A0652649A

PATIENT
  Age: 34 Year
  Sex: Female

DRUGS (9)
  1. TYKERB [Suspect]
     Indication: BREAST CANCER
     Dosage: 5TAB PER DAY
     Route: 048
     Dates: start: 20070505
  2. HERCEPTIN [Concomitant]
  3. UNKNOWN [Concomitant]
  4. UNKNOWN [Concomitant]
  5. ZOLADEX [Concomitant]
  6. ABRAXANE [Concomitant]
  7. POTASSIUM ACETATE [Concomitant]
  8. NISTATIN [Concomitant]
  9. ZOFRAN [Concomitant]

REACTIONS (9)
  - BLOOD POTASSIUM DECREASED [None]
  - DIARRHOEA [None]
  - FATIGUE [None]
  - NAUSEA [None]
  - ORAL CANDIDIASIS [None]
  - PHARYNGOLARYNGEAL PAIN [None]
  - RASH [None]
  - VOMITING [None]
  - WEIGHT DECREASED [None]
